FAERS Safety Report 22211092 (Version 1)
Quarter: 2023Q2

REPORT INFORMATION
  Report Type: Report from Study
  Country: US (occurrence: US)
  Receive Date: 20230414
  Receipt Date: 20230414
  Transmission Date: 20230721
  Serious: Yes (Hospitalization, Other)
  Sender: FDA-Public Use
  Company Number: US-GILEAD-2023-0624345

PATIENT
  Age: 80 Year
  Sex: Female

DRUGS (1)
  1. AMBRISENTAN [Suspect]
     Active Substance: AMBRISENTAN
     Indication: Pulmonary arterial hypertension
     Dosage: 10 MG, QD
     Route: 065
     Dates: start: 20200624

REACTIONS (3)
  - Pulmonary arterial hypertension [Unknown]
  - Chronic obstructive pulmonary disease [Unknown]
  - Respiratory failure [Unknown]

NARRATIVE: CASE EVENT DATE: 20230401
